FAERS Safety Report 26154176 (Version 1)
Quarter: 2025Q4

REPORT INFORMATION
  Report Type: Spontaneous
  Country: US (occurrence: US)
  Receive Date: 20251215
  Receipt Date: 20251215
  Transmission Date: 20260118
  Serious: Yes (Other)
  Sender: CSL BEHRING
  Company Number: US-BEH-2025228991

PATIENT
  Age: 4 Year
  Sex: Male
  Weight: 21 kg

DRUGS (1)
  1. HUMATE-P [Suspect]
     Active Substance: HUMAN COAGULATION FACTOR VIII/VON WILLEBRAND FACTOR COMPLEX
     Indication: Von Willebrand^s disease
     Dosage: RCO 40 UNITS/KG
     Route: 065
     Dates: start: 20251201

REACTIONS (2)
  - Genitourinary operation [Unknown]
  - Treatment delayed [Unknown]

NARRATIVE: CASE EVENT DATE: 20251201
